FAERS Safety Report 11779131 (Version 1)
Quarter: 2015Q4

REPORT INFORMATION
  Report Type: Spontaneous
  Country: DE (occurrence: DE)
  Receive Date: 20151125
  Receipt Date: 20151125
  Transmission Date: 20160304
  Serious: Yes (Other)
  Sender: FDA-Public Use
  Company Number: DE-RARE DISEASE THERAPEUTICS, INC.-1044668

PATIENT
  Sex: Female

DRUGS (3)
  1. PURIXAN [Suspect]
     Active Substance: MERCAPTOPURINE
     Indication: AUTOIMMUNE HEPATITIS
  2. PREDNISOLONE. [Suspect]
     Active Substance: PREDNISOLONE
  3. AZATHIOPRINE. [Suspect]
     Active Substance: AZATHIOPRINE

REACTIONS (2)
  - Uterine cancer [Unknown]
  - Off label use [Unknown]
